FAERS Safety Report 12640365 (Version 1)
Quarter: 2016Q3

REPORT INFORMATION
  Report Type: Spontaneous
  Country: US (occurrence: US)
  Receive Date: 20160810
  Receipt Date: 20160810
  Transmission Date: 20161109
  Serious: No
  Sender: FDA-Public Use
  Company Number: US-BEH-2016071972

PATIENT
  Sex: Male
  Weight: 16.78 kg

DRUGS (9)
  1. MULTI VITAMIN WITH FLUORIDE        /07254301/ [Concomitant]
  2. LIDOCAINE/PRILOCAINE [Concomitant]
     Active Substance: LIDOCAINE\PRILOCAINE
  3. HIZENTRA [Suspect]
     Active Substance: HUMAN IMMUNOGLOBULIN G
     Indication: HYPOGAMMAGLOBULINAEMIA
     Dosage: 4 G, BIW
     Route: 058
     Dates: start: 20150330
  4. FLORASTOR KIDS [Concomitant]
  5. HIZENTRA [Suspect]
     Active Substance: HUMAN IMMUNOGLOBULIN G
     Indication: IMMUNODEFICIENCY
  6. EPIPEN JR [Concomitant]
     Active Substance: EPINEPHRINE
  7. PROBIOTIC                          /06395501/ [Concomitant]
     Active Substance: BIFIDOBACTERIUM ANIMALIS SUBSP. LACTIS
  8. LIDOCAINE. [Concomitant]
     Active Substance: LIDOCAINE
  9. DIPHENHYDRAMINE. [Concomitant]
     Active Substance: DIPHENHYDRAMINE

REACTIONS (1)
  - Nasopharyngitis [Recovered/Resolved]
